FAERS Safety Report 9185739 (Version 2)
Quarter: 2013Q3

REPORT INFORMATION
  Report Type: Spontaneous
  Country: US (occurrence: None)
  Receive Date: 20120628
  Receipt Date: 20130724
  Transmission Date: 20140515
  Serious: Yes (Other)
  Sender: FDA-Public Use
  Company Number: PHEH2011US02200

PATIENT
  Age: 55 Year
  Sex: Female

DRUGS (1)
  1. RECLAST [Suspect]
     Dosage: 1 PER YEAR
     Route: 042

REACTIONS (12)
  - Influenza like illness [None]
  - Headache [None]
  - Nausea [None]
  - Vomiting [None]
  - Rash [None]
  - Arthralgia [None]
  - Muscle fatigue [None]
  - Diarrhoea [None]
  - Pyrexia [None]
  - Dry throat [None]
  - Tremor [None]
  - Fatigue [None]
